FAERS Safety Report 4931081-4 (Version None)
Quarter: 2006Q1

REPORT INFORMATION
  Report Type: 
  Country: None (occurrence: None)
  Receive Date: 20060302
  Receipt Date: 20050315
  Transmission Date: 20060701
  Serious: Yes (Hospitalization)
  Sender: FDA-Public Use
  Company Number: US-MERCK-0503USA03127

PATIENT
  Age: 48 Year
  Sex: Female
  Weight: 182 kg

DRUGS (3)
  1. VIOXX [Suspect]
     Indication: PAIN
     Route: 048
     Dates: end: 20011208
  2. VIOXX [Suspect]
     Indication: NERVE INJURY
     Route: 048
     Dates: end: 20011208
  3. [THERAPY UNSPECIFIED] [Concomitant]
     Route: 065

REACTIONS (12)
  - CARDIAC FAILURE [None]
  - CARDIAC FAILURE CONGESTIVE [None]
  - CARDIAC MURMUR [None]
  - CEREBROVASCULAR ACCIDENT [None]
  - HAEMORRHAGE [None]
  - HEPATOCELLULAR DAMAGE [None]
  - MYOCARDIAL INFARCTION [None]
  - PALPITATIONS [None]
  - PLATELET COUNT DECREASED [None]
  - RENAL DISORDER [None]
  - THROMBOSIS [None]
  - ULCER HAEMORRHAGE [None]
